FAERS Safety Report 5957770-0 (Version None)
Quarter: 2008Q4

REPORT INFORMATION
  Report Type: 
  Country: None (occurrence: None)
  Receive Date: 20081107
  Receipt Date: 20081027
  Transmission Date: 20090506
  Serious: Yes (Other)
  Sender: FDA-Public Use
  Company Number: 2008BI026251

PATIENT
  Age: 54 Year
  Sex: Female
  Weight: 97.5234 kg

DRUGS (4)
  1. AVONEX [Suspect]
     Indication: MULTIPLE SCLEROSIS
     Dosage: IM : 30 UG;QW;IM
     Route: 030
  2. NEXIUM [Concomitant]
  3. ADVAIR DISKUS 100/50 [Concomitant]
  4. HYDROCHLOROTHIAZIDE [Concomitant]

REACTIONS (8)
  - ARTHRITIS [None]
  - BREAST CANCER FEMALE [None]
  - GASTROINTESTINAL DISORDER [None]
  - GROIN PAIN [None]
  - HERNIA [None]
  - INFLUENZA LIKE ILLNESS [None]
  - INJECTION SITE HAEMATOMA [None]
  - PARAESTHESIA [None]
